FAERS Safety Report 25207476 (Version 1)
Quarter: 2025Q2

REPORT INFORMATION
  Report Type: Spontaneous
  Country: US (occurrence: None)
  Receive Date: 20250415
  Receipt Date: 20250415
  Transmission Date: 20250717
  Serious: Yes (Hospitalization)
  Sender: FDA-CTU
  Company Number: None

PATIENT
  Age: 63 Year
  Sex: Female
  Weight: 73 kg

DRUGS (1)
  1. LITHIUM [Suspect]
     Active Substance: LITHIUM

REACTIONS (4)
  - Tremor [None]
  - Muscle rigidity [None]
  - Thinking abnormal [None]
  - Antipsychotic drug level increased [None]

NARRATIVE: CASE EVENT DATE: 20250124
